FAERS Safety Report 14282871 (Version 1)
Quarter: 2017Q4

REPORT INFORMATION
  Report Type: Spontaneous
  Country: US (occurrence: US)
  Receive Date: 20171213
  Receipt Date: 20171213
  Transmission Date: 20180321
  Serious: No
  Sender: FDA-Public Use
  Company Number: US-PERNIX THERAPEUTICS-2017PT000019

PATIENT
  Age: 49 Year
  Sex: Female
  Weight: 63 kg

DRUGS (6)
  1. ALLEGRA [Concomitant]
     Active Substance: FEXOFENADINE HYDROCHLORIDE
  2. PROVIGIL [Concomitant]
     Active Substance: MODAFINIL
  3. NEXIUM [Concomitant]
     Active Substance: ESOMEPRAZOLE MAGNESIUM
  4. TUMS                               /00193601/ [Concomitant]
     Active Substance: CALCIUM CARBONATE\MAGNESIUM CARBONATE\MAGNESIUM TRISILICATE
  5. ADVAIR HFA [Concomitant]
     Active Substance: FLUTICASONE PROPIONATE\SALMETEROL XINAFOATE
  6. ZOHYDRO [Suspect]
     Active Substance: HYDROCODONE BITARTRATE
     Indication: PAIN
     Dosage: 30 MG, TWICE DAILY
     Route: 048
     Dates: start: 20170131

REACTIONS (4)
  - Abdominal distension [Not Recovered/Not Resolved]
  - Flatulence [Not Recovered/Not Resolved]
  - Dyspepsia [Not Recovered/Not Resolved]
  - Abdominal distension [Not Recovered/Not Resolved]

NARRATIVE: CASE EVENT DATE: 20170131
